FAERS Safety Report 25599666 (Version 1)
Quarter: 2025Q3

REPORT INFORMATION
  Report Type: Report from Study
  Country: DZ (occurrence: DZ)
  Receive Date: 20250724
  Receipt Date: 20250724
  Transmission Date: 20251020
  Serious: Yes (Death, Other)
  Sender: EMD SERONO INC
  Company Number: DZ-Merck Healthcare KGaA-2025036060

PATIENT
  Age: 54 Year
  Sex: Female

DRUGS (1)
  1. REBIF [Suspect]
     Active Substance: INTERFERON BETA-1A
     Indication: Multiple sclerosis
     Dates: start: 20140101, end: 20240213

REACTIONS (2)
  - Breast cancer [Fatal]
  - Decreased immune responsiveness [Unknown]
